FAERS Safety Report 5349868-5 (Version None)
Quarter: 2007Q2

REPORT INFORMATION
  Report Type: 
  Country: None (occurrence: None)
  Receive Date: 20070607
  Receipt Date: 20070517
  Transmission Date: 20071010
  Serious: Yes (Death)
  Sender: FDA-Public Use
  Company Number: US-BOEHRINGER INGELHEIM PHARMACEUTICALS, INC.-2007-BP-07665BP

PATIENT

DRUGS (1)
  1. COMBIVENT [Suspect]

REACTIONS (1)
  - VICTIM OF HOMICIDE [None]
